FAERS Safety Report 8346768-3 (Version None)
Quarter: 2012Q1

REPORT INFORMATION
  Report Type: 
  Country: None (occurrence: None)
  Receive Date: 20120315
  Receipt Date: 20110510
  Transmission Date: 20120608
  Serious: No
  Sender: FDA-Public Use
  Company Number: PHHY2011US37509

PATIENT
  Age: 61 Year
  Sex: Female

DRUGS (15)
  1. INSULIN (INSULIN) [Concomitant]
  2. AMLODIPINE [Concomitant]
  3. AMITIZA [Concomitant]
  4. PROZAC [Concomitant]
  5. GILENYA [Suspect]
     Indication: MULTIPLE SCLEROSIS
     Dosage: 0.5 MG, DAILY, ORAL
     Route: 048
     Dates: start: 20110222
  6. ZETIA [Concomitant]
  7. PHENERGAN HCL [Concomitant]
  8. TRAZODONE HCL [Concomitant]
  9. MELOXICAM [Concomitant]
  10. TIZANIDINE HCL [Concomitant]
  11. AVANDIA [Concomitant]
  12. ACTOS (PIOGLITAZONE, PIOGLITAZONE HYDROCHLORIDE) [Concomitant]
  13. PREVACID [Concomitant]
  14. SUMATRIPTAN [Concomitant]
  15. NUVIGIL [Concomitant]

REACTIONS (2)
  - MICTURITION URGENCY [None]
  - BACK PAIN [None]
